FAERS Safety Report 12240995 (Version 1)
Quarter: 2016Q2

REPORT INFORMATION
  Report Type: Spontaneous
  Country: US (occurrence: None)
  Receive Date: 20160405
  Receipt Date: 20160405
  Transmission Date: 20160815
  Serious: No
  Sender: FDA-Public Use
  Company Number: None

PATIENT
  Age: 17 Year
  Sex: Female

DRUGS (1)
  1. MONISTAT 7 COMBINATION PACK TRIPLE ACTION [Suspect]
     Active Substance: MICONAZOLE NITRATE
     Indication: FUNGAL INFECTION
     Dosage: 7 SUPPOSITORY(IES) AT BEDTIME VAGINAL
     Route: 067
     Dates: start: 20160404, end: 20160404

REACTIONS (2)
  - Condition aggravated [None]
  - Vulvovaginal pruritus [None]

NARRATIVE: CASE EVENT DATE: 20160404
